FAERS Safety Report 5466864-8 (Version None)
Quarter: 2007Q3

REPORT INFORMATION
  Report Type: 
  Country: None (occurrence: None)
  Receive Date: 20070920
  Receipt Date: 20070813
  Transmission Date: 20080115
  Serious: Yes (Hospitalization)
  Sender: FDA-Public Use
  Company Number: S07-FRA-05077-01

PATIENT
  Age: 85 Year
  Sex: Male

DRUGS (4)
  1. MEMANTINE HCL [Suspect]
     Dosage: 10 MG BID PO
     Route: 048
     Dates: start: 20060715, end: 20070803
  2. GALANTAMINE HYDROBROMIDE [Suspect]
     Dosage: 8 MG BID PO
     Route: 048
     Dates: start: 20030101, end: 20070803
  3. RISPERDAL [Suspect]
     Dosage: 1 MG BID PO
     Route: 048
     Dates: start: 20050715, end: 20070803
  4. RISPERDAL [Suspect]
     Dosage: 0.5 MG BID PO
     Route: 048
     Dates: start: 20070806

REACTIONS (4)
  - BLOOD UREA INCREASED [None]
  - CEREBRAL ATROPHY [None]
  - DEHYDRATION [None]
  - RHABDOMYOLYSIS [None]
